FAERS Safety Report 13498448 (Version 8)
Quarter: 2017Q3

REPORT INFORMATION
  Report Type: Report from Study
  Country: DE (occurrence: DE)
  Receive Date: 20170501
  Receipt Date: 20170918
  Transmission Date: 20171127
  Serious: Yes (Life-Threatening, Hospitalization, Other)
  Sender: FDA-Public Use
  Company Number: DE-ROCHE-1912329

PATIENT
  Age: 35 Year
  Sex: Female
  Weight: 45 kg

DRUGS (2)
  1. OBINUTUZUMAB. [Suspect]
     Active Substance: OBINUTUZUMAB
     Indication: B-CELL LYMPHOMA
     Dosage: MOST RECENT DOSE OF OBNITUZUMAB 1000 MG WAS ON 20/MAR/2017
     Route: 042
     Dates: start: 20170215, end: 20170320
  2. PIXANTRONE [Suspect]
     Active Substance: PIXANTRONE
     Indication: B-CELL LYMPHOMA
     Dosage: MOST RECENT DOSE (735 MG) PRIOR TO SAE : 03/APR/2017
     Route: 042
     Dates: start: 20170216, end: 20170403

REACTIONS (7)
  - Anal haemorrhage [Unknown]
  - Sepsis [Recovered/Resolved]
  - Cytopenia [Not Recovered/Not Resolved]
  - Febrile neutropenia [Recovered/Resolved]
  - Leukopenia [Recovered/Resolved]
  - Pneumonia [Recovered/Resolved]
  - Acute kidney injury [Recovered/Resolved]

NARRATIVE: CASE EVENT DATE: 20170327
